FAERS Safety Report 5738135-3 (Version None)
Quarter: 2008Q2

REPORT INFORMATION
  Report Type: 
  Country: None (occurrence: None)
  Receive Date: 20080514
  Receipt Date: 20080502
  Transmission Date: 20081010
  Serious: Yes (Other)
  Sender: FDA-Public Use
  Company Number: US-PFIZER INC-2008038839

PATIENT
  Sex: Female
  Weight: 70.454 kg

DRUGS (37)
  1. CHANTIX [Suspect]
     Indication: SMOKING CESSATION THERAPY
     Dosage: TEXT:EVERY DAY
     Route: 048
     Dates: start: 20071001, end: 20080214
  2. WARFARIN SODIUM [Concomitant]
  3. CELEBREX [Concomitant]
  4. FUROSEMIDE [Concomitant]
  5. FUROSEMIDE [Concomitant]
  6. ALL OTHER THERAPEUTIC PRODUCTS [Concomitant]
  7. ALL OTHER THERAPEUTIC PRODUCTS [Concomitant]
  8. TOPROL-XL [Concomitant]
  9. TOPROL-XL [Concomitant]
  10. GABAPENTIN [Concomitant]
  11. GABAPENTIN [Concomitant]
  12. LIPITOR [Concomitant]
  13. LIPITOR [Concomitant]
  14. WELLBUTRIN [Concomitant]
  15. WELLBUTRIN [Concomitant]
  16. METFORMIN HCL [Concomitant]
  17. METFORMIN HCL [Concomitant]
  18. ALLOPURINOL [Concomitant]
  19. ALLOPURINOL [Concomitant]
  20. LANOXIN [Concomitant]
  21. LANOXIN [Concomitant]
  22. LISINOPRIL [Concomitant]
  23. LISINOPRIL [Concomitant]
  24. SEROQUEL [Concomitant]
  25. SEROQUEL [Concomitant]
  26. COMBIVENT [Concomitant]
  27. COMBIVENT [Concomitant]
  28. PULMICORT [Concomitant]
  29. PULMICORT [Concomitant]
  30. ACETYLSALICYLIC ACID SRT [Concomitant]
  31. ACETYLSALICYLIC ACID SRT [Concomitant]
  32. ALL OTHER THERAPEUTIC PRODUCTS [Concomitant]
  33. ALL OTHER THERAPEUTIC PRODUCTS [Concomitant]
  34. CENTRUM SILVER [Concomitant]
  35. CENTRUM SILVER [Concomitant]
  36. ASCORBIC ACID [Concomitant]
  37. TUMS [Concomitant]

REACTIONS (2)
  - DRUG INEFFECTIVE [None]
  - GINGIVAL BLEEDING [None]
